FAERS Safety Report 8921879 (Version 1)
Quarter: 2012Q4

REPORT INFORMATION
  Report Type: Report from Study
  Country: FR (occurrence: FR)
  Receive Date: 20121121
  Receipt Date: 20121121
  Transmission Date: 20130627
  Serious: Yes (Hospitalization)
  Sender: FDA-Public Use
  Company Number: FR-EISAI INC-E3810-05630-SOL-FR

PATIENT
  Age: 76 Year
  Sex: Male
  Weight: 67 kg

DRUGS (9)
  1. PARIET (RABEPRAZOLE) [Suspect]
     Route: 048
  2. VELCADE [Suspect]
     Indication: MULTIPLE MYELOMA
     Route: 042
     Dates: start: 20120306
  3. VELCADE [Suspect]
     Dosage: UNKNOWN
     Route: 042
  4. DEXAMETHASONE [Suspect]
     Indication: MULTIPLE MYELOMA
     Route: 048
     Dates: start: 20110306
  5. AMLOR [Concomitant]
  6. PROZAC [Concomitant]
  7. NOVONORM [Concomitant]
  8. LEXOMIL [Concomitant]
  9. BICARBONATE [Concomitant]

REACTIONS (8)
  - Neuropathy peripheral [Unknown]
  - Pneumococcal infection [Recovered/Resolved with Sequelae]
  - Pericardial effusion [None]
  - Lung disorder [None]
  - Arthritis [None]
  - Sepsis [None]
  - Weight decreased [None]
  - Amyotrophy [None]
